FAERS Safety Report 11157639 (Version 2)
Quarter: 2015Q3

REPORT INFORMATION
  Report Type: Spontaneous
  Country: US (occurrence: US)
  Receive Date: 20150603
  Receipt Date: 20150916
  Transmission Date: 20151125
  Serious: Yes (Other)
  Sender: FDA-Public Use
  Company Number: US-ASTRAZENECA-2015SE39439

PATIENT
  Age: 23553 Day
  Sex: Female
  Weight: 73.9 kg

DRUGS (1)
  1. LYNPARZA [Suspect]
     Active Substance: OLAPARIB
     Indication: SOFT TISSUE SARCOMA
     Route: 048

REACTIONS (10)
  - Product use issue [Unknown]
  - Hypertension [Recovering/Resolving]
  - Wound [Recovering/Resolving]
  - Dyspnoea [Unknown]
  - Musculoskeletal stiffness [Recovering/Resolving]
  - Off label use [Unknown]
  - Malignant neoplasm progression [Unknown]
  - Diarrhoea [Unknown]
  - Pain [Recovering/Resolving]
  - Fatigue [Unknown]

NARRATIVE: CASE EVENT DATE: 20150423
